FAERS Safety Report 8449494-5 (Version None)
Quarter: 2012Q2

REPORT INFORMATION
  Report Type: 
  Country: None (occurrence: None)
  Receive Date: 20120619
  Receipt Date: 20120613
  Transmission Date: 20120825
  Serious: Yes (Hospitalization, Disabling, Other)
  Sender: FDA-Public Use
  Company Number: US-MERCK-1006USA00661

PATIENT
  Age: 51 Year
  Sex: Female
  Weight: 90 kg

DRUGS (10)
  1. COUMADIN [Concomitant]
     Indication: CEREBROVASCULAR ACCIDENT
     Route: 048
     Dates: start: 19950101
  2. ZOCOR [Concomitant]
     Indication: BLOOD CHOLESTEROL INCREASED
     Route: 048
     Dates: start: 19900101
  3. PROZAC [Concomitant]
     Indication: DEPRESSION
     Route: 048
     Dates: start: 19900101
  4. FOSAMAX [Suspect]
     Indication: OSTEOPENIA
     Route: 048
     Dates: start: 19980210, end: 20010521
  5. FOSAMAX [Suspect]
     Route: 048
     Dates: start: 20010624, end: 20080722
  6. CALCIUM (UNSPECIFIED) AND VITAMIN D (UNSPECIFIED) [Concomitant]
     Route: 048
     Dates: start: 19980101, end: 20080101
  7. LEVOTHYROXINE SODIUM [Concomitant]
     Indication: HYPOTHYROIDISM
     Route: 048
     Dates: start: 19800101
  8. FOSAMAX [Suspect]
     Route: 048
     Dates: start: 20010624, end: 20080722
  9. FOSAMAX [Suspect]
     Indication: OSTEOPOROSIS
     Route: 048
     Dates: start: 19980210, end: 20010521
  10. TOFRANIL [Concomitant]
     Indication: DEPRESSION
     Route: 048
     Dates: start: 19900101

REACTIONS (64)
  - FEMUR FRACTURE [None]
  - ENCEPHALOMALACIA [None]
  - HIP FRACTURE [None]
  - FALL [None]
  - RECTAL PROLAPSE [None]
  - PROCTITIS [None]
  - TOOTH FRACTURE [None]
  - SCIATICA [None]
  - NON-CARDIAC CHEST PAIN [None]
  - FRACTURED COCCYX [None]
  - FATIGUE [None]
  - COLONIC POLYP [None]
  - RENAL FAILURE ACUTE [None]
  - WHITE BLOOD CELL COUNT DECREASED [None]
  - SKIN LESION [None]
  - LATEX ALLERGY [None]
  - HIATUS HERNIA [None]
  - ANAEMIA [None]
  - ANAEMIA POSTOPERATIVE [None]
  - DYSPEPSIA [None]
  - MOOD ALTERED [None]
  - INTERVERTEBRAL DISC PROTRUSION [None]
  - GASTRITIS [None]
  - HAEMORRHOIDS [None]
  - DEPRESSION [None]
  - WEIGHT INCREASED [None]
  - TONSILLECTOMY [None]
  - PNEUMONIA [None]
  - COLITIS MICROSCOPIC [None]
  - DRY MOUTH [None]
  - RECTAL ULCER [None]
  - ARTHRALGIA [None]
  - OVARIAN MASS [None]
  - VITAMIN D DEFICIENCY [None]
  - FRACTURE DELAYED UNION [None]
  - MULTIPLE FRACTURES [None]
  - MYOCARDIAL INFARCTION [None]
  - ADVERSE DRUG REACTION [None]
  - COMPARTMENT SYNDROME [None]
  - DENTAL CARIES [None]
  - PAIN IN EXTREMITY [None]
  - HEREDITARY NON-POLYPOSIS COLORECTAL CANCER SYNDROME [None]
  - FOOT FRACTURE [None]
  - CALCIUM DEFICIENCY [None]
  - BACK PAIN [None]
  - CHEST PAIN [None]
  - VISION BLURRED [None]
  - TRANSIENT ISCHAEMIC ATTACK [None]
  - OSTEOPOROSIS [None]
  - LOW TURNOVER OSTEOPATHY [None]
  - EPISTAXIS [None]
  - NIGHT SWEATS [None]
  - MUSCLE SPASMS [None]
  - ANAEMIA OF CHRONIC DISEASE [None]
  - BREAST DISCHARGE [None]
  - DYSPAREUNIA [None]
  - DIVERTICULUM [None]
  - HYPERHIDROSIS [None]
  - URINARY TRACT INFECTION [None]
  - MYOSITIS [None]
  - MYALGIA [None]
  - HEADACHE [None]
  - CONSTIPATION [None]
  - ARTHRITIS [None]
